FAERS Safety Report 6601317-2 (Version None)
Quarter: 2010Q1

REPORT INFORMATION
  Report Type: 
  Country: None (occurrence: None)
  Receive Date: 20100225
  Receipt Date: 20100224
  Transmission Date: 20100710
  Serious: Yes (Hospitalization, Other)
  Sender: FDA-Public Use
  Company Number: DE-SANOFI-AVENTIS-2010SA008702

PATIENT
  Age: 42 Year
  Sex: Male
  Weight: 95 kg

DRUGS (3)
  1. MULTAQ [Suspect]
     Indication: VENTRICULAR TACHYCARDIA
     Dosage: INTAKE OF 11 TABLETSDOSAGE: 1-0-1
     Route: 048
     Dates: start: 20100209, end: 20100213
  2. SOTALOL [Concomitant]
     Indication: DRUG USE FOR UNKNOWN INDICATION
     Route: 065
  3. TAMBOCOR [Concomitant]
     Indication: DRUG USE FOR UNKNOWN INDICATION
     Route: 065

REACTIONS (4)
  - DEVICE PACING ISSUE [None]
  - OFF LABEL USE [None]
  - VENTRICULAR ARRHYTHMIA [None]
  - VENTRICULAR TACHYCARDIA [None]
